FAERS Safety Report 8202948-9 (Version None)
Quarter: 2012Q1

REPORT INFORMATION
  Report Type: 
  Country: None (occurrence: None)
  Receive Date: 20120312
  Receipt Date: 20120301
  Transmission Date: 20120608
  Serious: Yes (Hospitalization)
  Sender: FDA-Public Use
  Company Number: US-BAXTER-2012BH006182

PATIENT
  Sex: Female

DRUGS (1)
  1. DIANEAL [Suspect]
     Indication: PERITONEAL DIALYSIS
     Route: 033
     Dates: start: 20040301

REACTIONS (6)
  - BACTERAEMIA [None]
  - PERICARDIAL EFFUSION [None]
  - CLOSTRIDIAL INFECTION [None]
  - COLITIS [None]
  - HYPOTENSION [None]
  - PLEURAL EFFUSION [None]
